FAERS Safety Report 20067072 (Version 2)
Quarter: 2021Q4

REPORT INFORMATION
  Report Type: Spontaneous
  Country: US (occurrence: US)
  Receive Date: 20211115
  Receipt Date: 20211128
  Transmission Date: 20220303
  Serious: Yes (Hospitalization, Other)
  Sender: FDA-Public Use
  Company Number: US-AMGEN-USASP2021175879

PATIENT
  Sex: Female

DRUGS (5)
  1. PROLIA [Suspect]
     Active Substance: DENOSUMAB
     Indication: Product used for unknown indication
     Dosage: UNK
     Route: 065
  2. HYDROCHLOROTHIAZIDE [Concomitant]
     Active Substance: HYDROCHLOROTHIAZIDE
     Dosage: 12.5 MILLIGRAM
  3. ATORVASTATIN [Concomitant]
     Active Substance: ATORVASTATIN
     Dosage: 40 MILLIGRAM
  4. ROCALTROL [Concomitant]
     Active Substance: CALCITRIOL
  5. ERGOCALCIFEROL [Concomitant]
     Active Substance: ERGOCALCIFEROL
     Dosage: 1.250 UNK, BID (50,000 UNIT)
     Route: 048

REACTIONS (15)
  - Hypocalcaemia [Unknown]
  - Hyperparathyroidism secondary [Unknown]
  - Acute kidney injury [Recovered/Resolved]
  - Cystitis haemorrhagic [Unknown]
  - Electrocardiogram QT prolonged [Unknown]
  - Hypokalaemia [Recovered/Resolved]
  - Hypomagnesaemia [Recovered/Resolved]
  - Hypovolaemia [Recovered/Resolved]
  - Nephrogenic anaemia [Unknown]
  - Vitamin B12 deficiency [Unknown]
  - Hyperlipidaemia [Unknown]
  - Anxiety [Unknown]
  - Fall [Unknown]
  - Hypertension [Unknown]
  - Escherichia urinary tract infection [Unknown]

NARRATIVE: CASE EVENT DATE: 20210101
